FAERS Safety Report 6212085-0 (Version None)
Quarter: 2009Q2

REPORT INFORMATION
  Report Type: 
  Country: None (occurrence: None)
  Receive Date: 20090602
  Receipt Date: 20090521
  Transmission Date: 20091009
  Serious: Yes (Hospitalization)
  Sender: FDA-Public Use
  Company Number: PHHY2009JP19941

PATIENT
  Age: 65 Year
  Sex: Female
  Weight: 47 kg

DRUGS (5)
  1. DIOVAN [Suspect]
     Indication: HYPERTENSION
     Dosage: 40 MG, QD
     Route: 048
     Dates: start: 20060101, end: 20081229
  2. ASPIRIN [Suspect]
     Indication: HYPERTENSION
     Dosage: 200 MG, QD
     Route: 048
     Dates: start: 20060101, end: 20081229
  3. PANALDINE [Suspect]
     Indication: HYPERTENSION
     Dosage: 200 MG, QD
     Route: 048
     Dates: start: 20060101, end: 20081229
  4. PARIET [Concomitant]
     Dosage: UNK
     Route: 048
  5. URSO 250 [Concomitant]
     Dosage: 100 MG, UNK
     Route: 048

REACTIONS (7)
  - AUTOIMMUNE HEPATITIS [None]
  - BIOPSY LIVER ABNORMAL [None]
  - BLOOD BILIRUBIN INCREASED [None]
  - EOSINOPHIL COUNT INCREASED [None]
  - HEPATIC ENZYME INCREASED [None]
  - HEPATITIS [None]
  - OCULAR ICTERUS [None]
